FAERS Safety Report 24362482 (Version 1)
Quarter: 2024Q3

REPORT INFORMATION
  Report Type: Spontaneous
  Country: DE (occurrence: DE)
  Receive Date: 20240925
  Receipt Date: 20240925
  Transmission Date: 20241017
  Serious: Yes (Other)
  Sender: MYLAN
  Company Number: DE-MYLANLABS-2024M1085832

PATIENT
  Age: 25 Year
  Sex: Male

DRUGS (6)
  1. PREDNISOLONE [Suspect]
     Active Substance: PREDNISOLONE
     Indication: Pemphigoid
     Dosage: 0.5 MILLIGRAM/KILOGRAM
     Route: 065
  2. PREDNISOLONE [Suspect]
     Active Substance: PREDNISOLONE
     Dosage: UNK; TAPERED
     Route: 065
  3. MYCOPHENOLATE MOFETIL [Suspect]
     Active Substance: MYCOPHENOLATE MOFETIL
     Indication: Pemphigoid
     Dosage: UNK
     Route: 065
  4. DAPSONE [Suspect]
     Active Substance: DAPSONE
     Indication: Pemphigoid
     Dosage: 100 MILLIGRAM, QD
     Route: 048
  5. DAPSONE [Suspect]
     Active Substance: DAPSONE
     Dosage: UNK; TREATMENT STOPPED AND THEN CONTINUED
     Route: 065
  6. MOMETASONE FUROATE [Concomitant]
     Active Substance: MOMETASONE FUROATE
     Indication: Pemphigoid
     Dosage: UNK
     Route: 061

REACTIONS (6)
  - Intentional product misuse [Unknown]
  - Treatment noncompliance [Unknown]
  - Rebound effect [Recovered/Resolved]
  - Disease recurrence [Recovered/Resolved]
  - Pemphigoid [Recovered/Resolved]
  - Off label use [Unknown]
